FAERS Safety Report 12162597 (Version 4)
Quarter: 2020Q4

REPORT INFORMATION
  Report Type: Spontaneous
  Country: NL (occurrence: NL)
  Receive Date: 20160309
  Receipt Date: 20201014
  Transmission Date: 20210113
  Serious: Yes (Other)
  Sender: FDA-Public Use
  Company Number: NL-AUROBINDO-AUR-APL-2016-02436

PATIENT
  Age: 65 Year
  Sex: Female

DRUGS (6)
  1. AZATHIOPRINE. [Interacting]
     Active Substance: AZATHIOPRINE
     Indication: DERMATITIS ATOPIC
     Dosage: 50 MILLIGRAM, ONCE A DAY
     Route: 065
  2. AZATHIOPRINE. [Interacting]
     Active Substance: AZATHIOPRINE
     Dosage: 150 MILLIGRAM, ONCE A DAY
     Route: 065
  3. AZATHIOPRINE. [Interacting]
     Active Substance: AZATHIOPRINE
     Indication: DYSHIDROTIC ECZEMA
     Dosage: 100 MILLIGRAM, ONCE A DAY
     Route: 065
  4. PREDNISOLONE. [Suspect]
     Active Substance: PREDNISOLONE
     Indication: DYSHIDROTIC ECZEMA
  5. OMEPRAZOLE. [Suspect]
     Active Substance: OMEPRAZOLE
     Indication: GASTRIC DISORDER
     Dosage: 20 MILLIGRAM, ONCE A DAY
     Route: 065
  6. PREDNISOLONE. [Suspect]
     Active Substance: PREDNISOLONE
     Indication: DERMATITIS ATOPIC
     Dosage: 1 UNK, ONCE A DAY, 20?30 MG PER DAY IN A TAPERING DOSE
     Route: 048

REACTIONS (5)
  - Liver injury [Recovered/Resolved]
  - Off label use [Recovered/Resolved]
  - Gastrointestinal disorder [Recovered/Resolved]
  - Drug interaction [Recovered/Resolved]
  - Hepatic enzyme increased [Recovering/Resolving]
